FAERS Safety Report 4806447-3 (Version None)
Quarter: 2005Q4

REPORT INFORMATION
  Report Type: 
  Country: None (occurrence: None)
  Receive Date: 20051019
  Receipt Date: 20050127
  Transmission Date: 20060501
  Serious: Yes (Other)
  Sender: FDA-Public Use
  Company Number: WAES 0501USA50184

PATIENT
  Age: 64 Year
  Sex: Male
  Weight: 86.637 kg

DRUGS (5)
  1. VIOXX [Suspect]
     Indication: NEOPLASM PROPHYLAXIS
     Dosage: 25 MG/DAILY/PO
     Route: 048
     Dates: start: 20040504, end: 20040930
  2. COSOPT [Concomitant]
  3. BRIMONIDINE TARTRATE [Concomitant]
  4. LATANOPROST [Concomitant]
  5. VITAMINS (UNSPECIFIED) [Concomitant]

REACTIONS (1)
  - ELECTROCARDIOGRAM ST SEGMENT ABNORMAL [None]
